FAERS Safety Report 12585020 (Version 7)
Quarter: 2016Q4

REPORT INFORMATION
  Report Type: Report from Study
  Country: CA (occurrence: CA)
  Receive Date: 20160723
  Receipt Date: 20161210
  Transmission Date: 20170207
  Serious: Yes (Death, Hospitalization)
  Sender: FDA-Public Use
  Company Number: CA-ASTRAZENECA-2016SE78770

PATIENT
  Age: 77 Year
  Sex: Male
  Weight: 106 kg

DRUGS (12)
  1. ALEDRONIC ACID [Concomitant]
     Indication: OSTEITIS DEFORMANS
     Dates: start: 2001
  2. MIRABEGRON [Concomitant]
     Active Substance: MIRABEGRON
     Indication: MICTURITION URGENCY
     Route: 048
     Dates: start: 20151112
  3. METFORMIN [Concomitant]
     Active Substance: METFORMIN HYDROCHLORIDE
     Indication: TYPE 2 DIABETES MELLITUS
     Route: 048
     Dates: start: 2001
  4. ASA [Concomitant]
     Active Substance: ASPIRIN
     Indication: CORONARY ARTERY DISEASE
     Route: 048
     Dates: start: 2011
  5. BYDUREON [Suspect]
     Active Substance: EXENATIDE
     Indication: TYPE 2 DIABETES MELLITUS
     Route: 058
     Dates: start: 20130822, end: 201603
  6. LEVOTHYROXINE. [Concomitant]
     Active Substance: LEVOTHYROXINE
     Indication: HYPOTHYROIDISM
     Dosage: 25
     Dates: start: 20160428
  7. DORZOLOMIDE [Concomitant]
     Active Substance: DORZOLAMIDE
     Indication: RETINOPATHY
     Dosage: 1 DROP TO EACH EYE BID
     Dates: start: 20160406
  8. TRAVAPOST [Concomitant]
     Indication: RETINOPATHY
     Dosage: 1 DROP TO EACH EYE BID
     Dates: start: 20160406, end: 20160406
  9. BRINZALAMIDE [Concomitant]
     Indication: RETINOPATHY
     Dosage: 1 DROP TO EACH EYE BID
     Dates: start: 20160406
  10. ATENOLOL. [Concomitant]
     Active Substance: ATENOLOL
     Indication: CORONARY ARTERY DISEASE
     Route: 048
     Dates: start: 2001
  11. MIRTAZAPINE. [Concomitant]
     Active Substance: MIRTAZAPINE
     Indication: INSOMNIA
     Route: 048
     Dates: start: 20160609
  12. DUTASTERIDE. [Concomitant]
     Active Substance: DUTASTERIDE
     Indication: PROSTATOMEGALY
     Route: 048
     Dates: start: 20150120

REACTIONS (2)
  - Hepatocellular carcinoma [Not Recovered/Not Resolved]
  - Neuroendocrine tumour [Fatal]

NARRATIVE: CASE EVENT DATE: 20160630
